FAERS Safety Report 20587678 (Version 1)
Quarter: 2022Q1

REPORT INFORMATION
  Report Type: Spontaneous
  Country: IT (occurrence: IT)
  Receive Date: 20220314
  Receipt Date: 20220314
  Transmission Date: 20220423
  Serious: Yes (Other)
  Sender: FDA-Public Use
  Company Number: IT-SUN PHARMACEUTICAL INDUSTRIES LTD-2022R1-329187

PATIENT
  Age: 38 Year
  Sex: Female
  Weight: 80 kg

DRUGS (17)
  1. DEXAMETHASONE [Suspect]
     Active Substance: DEXAMETHASONE
     Indication: COVID-19
     Dosage: 6 MILLIGRAM, DAILY
     Route: 065
  2. DEXAMETHASONE [Suspect]
     Active Substance: DEXAMETHASONE
     Dosage: 5 MILLIGRAM, DAILY
     Route: 065
  3. DEXAMETHASONE [Suspect]
     Active Substance: DEXAMETHASONE
     Dosage: 1 MILLIGRAM, DAILY
     Route: 065
  4. CEFDITOREN [Concomitant]
     Active Substance: CEFDITOREN
     Indication: COVID-19
     Dosage: 800 MILLIGRAM, DAILY
     Route: 065
  5. ENOXAPARIN [Concomitant]
     Active Substance: ENOXAPARIN
     Indication: COVID-19
     Dosage: 16000 UNITS, DAILY
     Route: 065
  6. ENOXAPARIN [Concomitant]
     Active Substance: ENOXAPARIN
     Dosage: 8000 UNITS, DAILY
     Route: 065
  7. FAMOTIDINE [Concomitant]
     Active Substance: FAMOTIDINE
     Indication: COVID-19
     Dosage: 40 MILLIGRAM, DAILY
     Route: 065
  8. LACTOFERRIN [Concomitant]
     Active Substance: LACTOFERRIN
     Indication: COVID-19
     Dosage: 200 MILLIGRAM, DAILY
     Route: 065
  9. polidatina [Concomitant]
     Indication: COVID-19
     Dosage: 160 MILLIGRAM, DAILY
     Route: 065
  10. POTASSIUM CHLORIDE [Concomitant]
     Active Substance: POTASSIUM CHLORIDE
     Indication: COVID-19
     Dosage: 600 MILLIGRAM, DAILY
     Route: 065
  11. QUERCETIN [Concomitant]
     Active Substance: QUERCETIN
     Indication: COVID-19
     Dosage: 200 MILLIGRAM, DAILY
     Route: 065
  12. VITAMIN B12 [Concomitant]
     Active Substance: CYANOCOBALAMIN
     Indication: COVID-19
     Dosage: 0.05 MILLIGRAM, DAILY
     Route: 065
  13. VITAMIN C [Concomitant]
     Active Substance: ASCORBIC ACID
     Indication: COVID-19
     Dosage: 3 GRAM, DAILY
     Route: 065
  14. VITAMIN D [Concomitant]
     Active Substance: VITAMIN D NOS
     Indication: COVID-19
     Dosage: 50000 UNITS, DAILY
     Route: 065
  15. VITAMIN D [Concomitant]
     Active Substance: VITAMIN D NOS
     Dosage: 10000 UNITS, DAILY
     Route: 065
  16. MENAQUINONE 6 [Concomitant]
     Active Substance: MENAQUINONE 6
     Indication: COVID-19
     Dosage: 0.1 MILLIGRAM, DAILY
     Route: 065
  17. ZINC PIDOLATE [Concomitant]
     Active Substance: ZINC PIDOLATE
     Indication: COVID-19
     Dosage: 12.5 MILLIGRAM, DAILY
     Route: 065

REACTIONS (2)
  - Psychotic disorder [Recovering/Resolving]
  - Hypothalamic pituitary adrenal axis suppression [Recovering/Resolving]
